FAERS Safety Report 23320447 (Version 3)
Quarter: 2024Q1

REPORT INFORMATION
  Report Type: Spontaneous
  Country: US (occurrence: US)
  Receive Date: 20231220
  Receipt Date: 20240322
  Transmission Date: 20240410
  Serious: Yes (Other)
  Sender: FDA-Public Use
  Company Number: US-PFIZER INC-PV202300200608

PATIENT
  Age: 61 Year
  Sex: Female

DRUGS (2)
  1. IBRANCE [Suspect]
     Active Substance: PALBOCICLIB
     Dosage: 100 MG
  2. IBRANCE [Suspect]
     Active Substance: PALBOCICLIB
     Dosage: 75 MG, CYCLIC (TAKE 75 MG DAILY, ON DAYS 1-21 OF 28 DAY CYCLE)
     Route: 048

REACTIONS (3)
  - Neutropenia [Unknown]
  - Pharyngitis streptococcal [Recovered/Resolved]
  - White blood cell count decreased [Unknown]
